FAERS Safety Report 19221485 (Version 1)
Quarter: 2021Q2

REPORT INFORMATION
  Report Type: Spontaneous
  Country: US (occurrence: US)
  Receive Date: 20210505
  Receipt Date: 20210505
  Transmission Date: 20210717
  Serious: Yes (Other)
  Sender: FDA-Public Use
  Company Number: US-CELGENEUS-USA-20210407465

PATIENT
  Sex: Male

DRUGS (4)
  1. INREBIC [Suspect]
     Active Substance: FEDRATINIB HYDROCHLORIDE
     Dosage: 10 MILLIGRAM
     Route: 048
  2. INREBIC [Suspect]
     Active Substance: FEDRATINIB HYDROCHLORIDE
     Indication: POLYCYTHAEMIA VERA
     Dosage: 30 MILLIGRAM
     Route: 048
  3. INREBIC [Suspect]
     Active Substance: FEDRATINIB HYDROCHLORIDE
     Dosage: 20 MILLIGRAM
     Route: 048
  4. INREBIC [Suspect]
     Active Substance: FEDRATINIB HYDROCHLORIDE
     Indication: THROMBOCYTOPENIA
     Dosage: 40 MILLIGRAM
     Route: 048

REACTIONS (3)
  - Eating disorder [Unknown]
  - Weight decreased [Unknown]
  - Thrombosis [Unknown]
